FAERS Safety Report 19813941 (Version 1)
Quarter: 2021Q3

REPORT INFORMATION
  Report Type: Other
  Country: ES (occurrence: ES)
  Receive Date: 20210910
  Receipt Date: 20210910
  Transmission Date: 20211014
  Serious: Yes (Other)
  Sender: FDA-Public Use
  Company Number: ES-ROCHE-1329447

PATIENT

DRUGS (7)
  1. RITUXIMAB. [Suspect]
     Active Substance: RITUXIMAB
     Route: 042
  2. RITUXIMAB. [Suspect]
     Active Substance: RITUXIMAB
     Indication: FOLLICULAR LYMPHOMA
     Dosage: FOR TWO YEARS
     Route: 042
  3. IBRITUMOMAB TIUXETAN [Suspect]
     Active Substance: IBRITUMOMAB TIUXETAN
     Indication: FOLLICULAR LYMPHOMA
     Dosage: 14.8 MBQ/KG (0.4 MCI/KG)
     Route: 065
  4. VINCRISTINE [Suspect]
     Active Substance: VINCRISTINE
     Indication: FOLLICULAR LYMPHOMA
     Route: 065
  5. CYCLOPHOSPHAMIDE. [Suspect]
     Active Substance: CYCLOPHOSPHAMIDE
     Indication: FOLLICULAR LYMPHOMA
     Route: 065
  6. DOXORUBICIN [Suspect]
     Active Substance: DOXORUBICIN
     Indication: FOLLICULAR LYMPHOMA
     Route: 065
  7. PREDNISONE. [Suspect]
     Active Substance: PREDNISONE
     Indication: FOLLICULAR LYMPHOMA
     Route: 065

REACTIONS (12)
  - Febrile neutropenia [Unknown]
  - Nervous system disorder [Unknown]
  - Neoplasm malignant [Unknown]
  - Gastrointestinal disorder [Unknown]
  - Hodgkin^s disease [Unknown]
  - Thrombocytopenia [Unknown]
  - Neutropenia [Unknown]
  - Pneumonia [Unknown]
  - Thrombosis [Unknown]
  - Acute myeloid leukaemia [Unknown]
  - Neoplasm [Unknown]
  - Myelodysplastic syndrome [Unknown]
